FAERS Safety Report 5268102-8 (Version None)
Quarter: 2007Q1

REPORT INFORMATION
  Report Type: 
  Country: None (occurrence: None)
  Receive Date: 20070319
  Receipt Date: 20070306
  Transmission Date: 20070707
  Serious: Yes (Other)
  Sender: FDA-Public Use
  Company Number: PHBS2007ES03928

PATIENT
  Sex: Female

DRUGS (1)
  1. DIOVAN [Suspect]
     Dates: start: 20070113

REACTIONS (3)
  - HYPOKALAEMIA [None]
  - RHABDOMYOLYSIS [None]
  - WALKING DISABILITY [None]
